FAERS Safety Report 7545679-0 (Version None)
Quarter: 2011Q2

REPORT INFORMATION
  Report Type: 
  Country: None (occurrence: None)
  Receive Date: 20110614
  Receipt Date: 20110601
  Transmission Date: 20111010
  Serious: Yes (Other)
  Sender: FDA-Public Use
  Company Number: CH-AMGEN-CHESP2011028132

PATIENT
  Sex: Female

DRUGS (2)
  1. NPLATE [Suspect]
     Indication: IDIOPATHIC THROMBOCYTOPENIC PURPURA
     Dosage: 250 A?G, UNK
     Dates: start: 20110301
  2. PREDNISOLONE [Concomitant]
     Dosage: 5 MG, UNK

REACTIONS (3)
  - PLATELET COUNT DECREASED [None]
  - REBOUND EFFECT [None]
  - NEUTRALISING ANTIBODIES [None]
